FAERS Safety Report 10243721 (Version 1)
Quarter: 2014Q2

REPORT INFORMATION
  Report Type: Spontaneous
  Country: US (occurrence: US)
  Receive Date: 20140618
  Receipt Date: 20140618
  Transmission Date: 20141212
  Serious: No
  Sender: FDA-Public Use
  Company Number: US-PFIZER INC-2014164666

PATIENT
  Age: 68 Year
  Sex: Female
  Weight: 70.3 kg

DRUGS (2)
  1. ADVIL [Suspect]
     Indication: ARTHRALGIA
     Dosage: UNK
     Route: 048
  2. ADVIL [Suspect]
     Dosage: 400 MG, (TWO TABLETS OF 200MG TOGETHER)
     Route: 048
     Dates: start: 20140606, end: 20140606

REACTIONS (3)
  - Intentional product misuse [Unknown]
  - Gastric disorder [Unknown]
  - Chest pain [Not Recovered/Not Resolved]
